FAERS Safety Report 8414191-9 (Version None)
Quarter: 2012Q2

REPORT INFORMATION
  Report Type: 
  Country: None (occurrence: None)
  Receive Date: 20120605
  Receipt Date: 20120412
  Transmission Date: 20120825
  Serious: Yes (Hospitalization)
  Sender: FDA-Public Use
  Company Number: NL-MEDIMMUNE-MEDI-0014785

PATIENT
  Age: 17 Month
  Sex: Male
  Weight: 8.7 kg

DRUGS (3)
  1. SYNAGIS [Suspect]
     Route: 030
     Dates: start: 20111206
  2. SYNAGIS [Suspect]
     Indication: MYOPATHY
     Route: 030
  3. SYNAGIS [Suspect]
     Route: 030
     Dates: start: 20111108, end: 20111108

REACTIONS (2)
  - PNEUMONIA [None]
  - VIRAL INFECTION [None]
